FAERS Safety Report 8387864-4 (Version None)
Quarter: 2012Q2

REPORT INFORMATION
  Report Type: 
  Country: None (occurrence: None)
  Receive Date: 20120525
  Receipt Date: 20120514
  Transmission Date: 20120825
  Serious: Yes (Other)
  Sender: FDA-Public Use
  Company Number: GB-VERTEX PHARMACEUTICALS INC.-000000000000000731

PATIENT
  Age: 49 Year
  Sex: Male
  Weight: 105 kg

DRUGS (3)
  1. REBETOL [Concomitant]
     Indication: HEPATITIS C RNA POSITIVE
     Dosage: DOSAGE FORM: UNSPECIFIED
     Route: 065
  2. INCIVO [Suspect]
     Indication: HEPATITIS C RNA POSITIVE
     Dosage: DOSAGE FORM: TABLET
     Route: 048
     Dates: start: 20120207, end: 20120501
  3. VIRAFERONPEG [Concomitant]
     Indication: HEPATITIS C RNA POSITIVE
     Dosage: DOSAGE FORM: UNSPECIFIED
     Route: 065

REACTIONS (1)
  - RASH [None]
